FAERS Safety Report 11653066 (Version 1)
Quarter: 2015Q4

REPORT INFORMATION
  Report Type: Spontaneous
  Country: US (occurrence: None)
  Receive Date: 20151022
  Receipt Date: 20151022
  Transmission Date: 20160304
  Serious: Yes (Other)
  Sender: FDA-Public Use
  Company Number: None

PATIENT
  Age: 12 Year
  Sex: Female
  Weight: 43.09 kg

DRUGS (1)
  1. METHYLPHENIDATE ER 18 MG KREMERS URBAN PHARMACEUTICALS [Suspect]
     Active Substance: METHYLPHENIDATE HYDROCHLORIDE
     Indication: ATTENTION DEFICIT/HYPERACTIVITY DISORDER
     Route: 048
     Dates: start: 20150929, end: 20151021

REACTIONS (4)
  - Product physical issue [None]
  - Product solubility abnormal [None]
  - Drug effect increased [None]
  - Vomiting [None]

NARRATIVE: CASE EVENT DATE: 20151019
